FAERS Safety Report 8336614-6 (Version None)
Quarter: 2012Q2

REPORT INFORMATION
  Report Type: 
  Country: None (occurrence: None)
  Receive Date: 20120504
  Receipt Date: 20120427
  Transmission Date: 20120825
  Serious: Yes (Hospitalization)
  Sender: FDA-Public Use
  Company Number: FR-MILLENNIUM PHARMACEUTICALS, INC.-2012-00946

PATIENT

DRUGS (8)
  1. POLYETHYLENE GLYCOL [Concomitant]
     Indication: CONSTIPATION
  2. VELCADE [Suspect]
     Indication: MULTIPLE MYELOMA
     Dosage: 1.3 MG/M2, UNK
     Dates: start: 20111223, end: 20120203
  3. EPOETIN [Concomitant]
     Indication: ANTIBIOTIC PROPHYLAXIS
     Dosage: UNK
  4. DURAIBUPROFEN                      /00109201/ [Concomitant]
     Indication: ANAEMIA
     Dosage: UNK
     Dates: start: 20111228
  5. PIPERACILLIN AND TAZOBACTAM [Concomitant]
     Indication: ANTIBIOTIC PROPHYLAXIS
  6. ARANESP [Concomitant]
     Indication: ANTIBIOTIC PROPHYLAXIS
  7. DEXAMETHASONE [Suspect]
     Indication: MULTIPLE MYELOMA
     Dosage: 20 MG, UNK
     Route: 048
     Dates: start: 20120113, end: 20120116
  8. LEDERFOLIN                         /00566702/ [Concomitant]
     Dosage: 5 MG, UNK
     Route: 048
     Dates: start: 20111227

REACTIONS (1)
  - BACTERIAL PYELONEPHRITIS [None]
